FAERS Safety Report 8738392 (Version 4)
Quarter: 2012Q4

REPORT INFORMATION
  Report Type: 
  Country: DE (occurrence: DE)
  Receive Date: 20120823
  Receipt Date: 20121022
  Transmission Date: 20130627
  Serious: Yes (Hospitalization, Other)
  Sender: FDA-Public Use
  Company Number: DE-GENZYME-THYM-1003339

PATIENT
  Age: 61 Year
  Sex: Male
  Weight: 61 kg

DRUGS (4)
  1. THYMOGLOBULINE [Suspect]
     Indication: RENAL TRANSPLANT
     Dosage: 85.5 mg, UNK
     Route: 042
     Dates: start: 20120411
  2. TACROLIMUS [Suspect]
     Indication: RENAL TRANSPLANT
     Dosage: 8 mg, qd
     Route: 048
     Dates: start: 20120411, end: 20120822
  3. CELLCEPT [Suspect]
     Indication: RENAL TRANSPLANT
     Dosage: 500 mg, bid
     Route: 048
     Dates: start: 20120411, end: 20120822
  4. DECORTIN H [Suspect]
     Indication: RENAL TRANSPLANT
     Dosage: 25 mg, UNK
     Route: 048
     Dates: start: 20120411

REACTIONS (5)
  - Transplant failure [Not Recovered/Not Resolved]
  - Hypovolaemia [Recovered/Resolved]
  - Polyomavirus-associated nephropathy [Not Recovered/Not Resolved]
  - Urinary tract infection [Recovered/Resolved]
  - Blood creatinine increased [Not Recovered/Not Resolved]
